FAERS Safety Report 5636614-0 (Version None)
Quarter: 2008Q1

REPORT INFORMATION
  Report Type: 
  Country: None (occurrence: None)
  Receive Date: 20080225
  Receipt Date: 20080211
  Transmission Date: 20080703
  Serious: Yes (Other)
  Sender: FDA-Public Use
  Company Number: NSADSS2002043108

PATIENT
  Age: 38 Year
  Sex: Male
  Weight: 86.18 kg

DRUGS (2)
  1. REMICADE [Suspect]
     Indication: CROHN'S DISEASE
     Dosage: RECEIVED FOR 2 YEARS
     Route: 041
  2. 6 MP [Concomitant]

REACTIONS (2)
  - IGA NEPHROPATHY [None]
  - IMMUNOGLOBULINS INCREASED [None]
